FAERS Safety Report 9979388 (Version 2)
Quarter: 2014Q1

REPORT INFORMATION
  Report Type: Spontaneous
  Country: US (occurrence: US)
  Receive Date: 20140306
  Receipt Date: 20140306
  Transmission Date: 20141002
  Serious: No
  Sender: FDA-Public Use
  Company Number: US-ABBVIE-13P-163-1047231-00

PATIENT
  Age: 33 Year
  Sex: Female
  Weight: 82.63 kg

DRUGS (4)
  1. HUMIRA [Suspect]
     Indication: CROHN^S DISEASE
     Route: 058
     Dates: start: 20080618, end: 201212
  2. HUMIRA [Suspect]
     Route: 058
     Dates: start: 201302
  3. PREVACID [Concomitant]
     Indication: GASTROOESOPHAGEAL REFLUX DISEASE
  4. CLARITIN [Concomitant]
     Indication: HYPERSENSITIVITY

REACTIONS (4)
  - Dermatitis [Recovered/Resolved]
  - Skin infection [Recovered/Resolved]
  - Rash [Recovered/Resolved]
  - Rash [Unknown]
